FAERS Safety Report 10359761 (Version 1)
Quarter: 2014Q3

REPORT INFORMATION
  Report Type: Spontaneous
  Country: US (occurrence: None)
  Receive Date: 20140801
  Receipt Date: 20140801
  Transmission Date: 20150326
  Serious: Yes (Life-Threatening, Disabling)
  Sender: FDA-Public Use
  Company Number: None

PATIENT
  Age: 47 Year
  Sex: Female
  Weight: 61.69 kg

DRUGS (10)
  1. LITHIUM [Concomitant]
     Active Substance: LITHIUM CARBONATE
  2. B1 [Concomitant]
  3. GARLIC. [Concomitant]
     Active Substance: GARLIC
  4. INHALERS [Concomitant]
     Active Substance: UNSPECIFIED INGREDIENT
  5. CINNAMON. [Concomitant]
     Active Substance: CINNAMON
  6. VIATIM D WITH CALCIUM [Concomitant]
  7. VITAMIN B12 [Concomitant]
     Active Substance: CYANOCOBALAMIN
  8. PAPA [Concomitant]
  9. ABILIFY [Suspect]
     Active Substance: ARIPIPRAZOLE
     Indication: DEPRESSION
     Dosage: 5 AND 1/2 YEARS AGO
     Route: 048
  10. MULTI [Concomitant]

REACTIONS (2)
  - Suicidal ideation [None]
  - Mental disorder [None]
